FAERS Safety Report 5611253-6 (Version None)
Quarter: 2008Q1

REPORT INFORMATION
  Report Type: 
  Country: None (occurrence: None)
  Receive Date: 20080201
  Receipt Date: 20080125
  Transmission Date: 20080703
  Serious: Yes (Other)
  Sender: FDA-Public Use
  Company Number: PHHO2008DE01539

PATIENT
  Age: 71 Year
  Sex: Female

DRUGS (1)
  1. CGP 42446 [Suspect]
     Indication: MULTIPLE MYELOMA
     Route: 042
     Dates: start: 20050621, end: 20071106

REACTIONS (2)
  - OSTEONECROSIS [None]
  - PAIN IN JAW [None]
